FAERS Safety Report 7730636-1 (Version None)
Quarter: 2011Q3

REPORT INFORMATION
  Report Type: 
  Country: None (occurrence: None)
  Receive Date: 20110901
  Receipt Date: 20110901
  Transmission Date: 20111222
  Serious: Yes (Hospitalization)
  Sender: FDA-Public Use
  Company Number: None

PATIENT
  Sex: Male
  Weight: 102.8758 kg

DRUGS (6)
  1. SIMULECT [Concomitant]
  2. MYFORTIC [Suspect]
     Indication: IMMUNOSUPPRESSION
     Dosage: 720 MG BID PO
     Route: 048
     Dates: start: 20110719
  3. MYFORTIC [Suspect]
     Indication: RENAL TRANSPLANT
     Dosage: 720 MG BID PO
     Route: 048
     Dates: start: 20110719
  4. PROGRAF [Concomitant]
  5. PREDNISONE [Concomitant]
  6. THYMOGLOBULIN [Concomitant]

REACTIONS (2)
  - COMPLEMENT FACTOR C4 INCREASED [None]
  - BLOOD CREATININE INCREASED [None]
